FAERS Safety Report 5074495-7 (Version None)
Quarter: 2006Q3

REPORT INFORMATION
  Report Type: 
  Country: None (occurrence: None)
  Receive Date: 20060803
  Receipt Date: 20060725
  Transmission Date: 20061208
  Serious: Yes (Other)
  Sender: FDA-Public Use
  Company Number: 2006-07-1459

PATIENT

DRUGS (2)
  1. PEG-INTRON [Suspect]
     Dates: start: 20050101, end: 20050101
  2. REBETOL [Suspect]
     Dosage: ORAL
     Route: 048
     Dates: start: 20050101, end: 20050101

REACTIONS (1)
  - NON-HODGKIN'S LYMPHOMA [None]
